FAERS Safety Report 8605163-X (Version None)
Quarter: 2012Q3

REPORT INFORMATION
  Report Type: 
  Country: None (occurrence: None)
  Receive Date: 20120820
  Receipt Date: 20120806
  Transmission Date: 20120928
  Serious: No
  Sender: FDA-Public Use
  Company Number: US-ASTRAZENECA-2012SE45292

PATIENT
  Age: 88 Year
  Sex: Male

DRUGS (7)
  1. SYMBICORT [Suspect]
     Dosage: 80/4.5 MGS TWO TIMES A DAY
     Route: 055
  2. PREDNISONE TAB [Concomitant]
     Route: 048
  3. POTASSIUM [Concomitant]
  4. HYDROCHLOROTHIAZIDE [Concomitant]
  5. LISINOPRIL [Concomitant]
  6. ISOSORBIDE [Concomitant]
     Route: 048
  7. SYMBICORT [Suspect]
     Indication: CHRONIC OBSTRUCTIVE PULMONARY DISEASE
     Dosage: 160 MCGS TWO TIMES A DAY
     Route: 055

REACTIONS (2)
  - CIRCUMSTANCE OR INFORMATION CAPABLE OF LEADING TO MEDICATION ERROR [None]
  - DYSPNOEA [None]
